FAERS Safety Report 7227122-4 (Version None)
Quarter: 2011Q1

REPORT INFORMATION
  Report Type: 
  Country: None (occurrence: None)
  Receive Date: 20110111
  Receipt Date: 20110111
  Transmission Date: 20110831
  Serious: Yes (Disabling, Other)
  Sender: FDA-Public Use
  Company Number: None

PATIENT
  Age: 72 Year
  Sex: Male
  Weight: 106.5953 kg

DRUGS (1)
  1. LEVAQUIN [Suspect]
     Indication: SINUSITIS
     Dosage: ONE PER DAY PO
     Route: 048
     Dates: start: 20101119, end: 20101201

REACTIONS (9)
  - DISCOMFORT [None]
  - TENDON PAIN [None]
  - PARAESTHESIA [None]
  - HYPOAESTHESIA [None]
  - INSOMNIA [None]
  - ARTHRALGIA [None]
  - GAIT DISTURBANCE [None]
  - ACTIVITIES OF DAILY LIVING IMPAIRED [None]
  - PAIN IN EXTREMITY [None]
